FAERS Safety Report 14794375 (Version 1)
Quarter: 2018Q2

REPORT INFORMATION
  Report Type: Spontaneous
  Country: US (occurrence: US)
  Receive Date: 20180423
  Receipt Date: 20180423
  Transmission Date: 20180711
  Serious: Yes (Other)
  Sender: FDA-Public Use
  Company Number: US-ASTRAZENECA-2017SF26925

PATIENT
  Age: 612 Month
  Sex: Female
  Weight: 108 kg

DRUGS (4)
  1. ZOLADEX [Suspect]
     Active Substance: GOSERELIN ACETATE
     Indication: BREAST CANCER FEMALE
     Dosage: UNKNOWN, MONTHLY
     Route: 058
  2. IBRANCE [Suspect]
     Active Substance: PALBOCICLIB
     Indication: MALIGNANT NEOPLASM PROGRESSION
     Route: 048
     Dates: start: 201702
  3. FASLODEX [Suspect]
     Active Substance: FULVESTRANT
     Indication: MALIGNANT NEOPLASM PROGRESSION
     Route: 030
     Dates: start: 201702
  4. XGEVA [Concomitant]
     Active Substance: DENOSUMAB
     Indication: BONE DISORDER
     Dosage: UNK, MONTHLY
     Route: 030
     Dates: start: 201609

REACTIONS (3)
  - Administration site nerve damage [Unknown]
  - Pain [Unknown]
  - Metastases to bone [Unknown]

NARRATIVE: CASE EVENT DATE: 201711
